FAERS Safety Report 6676798-9 (Version None)
Quarter: 2010Q2

REPORT INFORMATION
  Report Type: 
  Country: None (occurrence: None)
  Receive Date: 20100409
  Receipt Date: 20100409
  Transmission Date: 20101027
  Serious: Yes (Disabling)
  Sender: FDA-Public Use
  Company Number: None

PATIENT
  Age: 78 Year
  Sex: Female
  Weight: 77.1115 kg

DRUGS (4)
  1. AMOXICILLIN [Suspect]
     Indication: CARDIAC DISORDER
     Dosage: 150 MG EACH VISIT TO DENTIST
     Dates: start: 20020101, end: 20090201
  2. AMOXICILLIN [Suspect]
     Indication: INFECTION
     Dosage: 150 MG EACH VISIT TO DENTIST
     Dates: start: 20020101, end: 20090201
  3. AMOXICILLIN [Suspect]
     Indication: PROPHYLAXIS
     Dosage: 150 MG EACH VISIT TO DENTIST
     Dates: start: 20020101, end: 20090201
  4. ATENOLOL [Suspect]

REACTIONS (10)
  - BALANCE DISORDER [None]
  - BLOOD PRESSURE INCREASED [None]
  - CEREBROVASCULAR ACCIDENT [None]
  - DYSPNOEA [None]
  - FALL [None]
  - HUMERUS FRACTURE [None]
  - MALAISE [None]
  - MUSCULAR WEAKNESS [None]
  - MUSCULOSKELETAL PAIN [None]
  - TRANSIENT ISCHAEMIC ATTACK [None]
